FAERS Safety Report 7240227-7 (Version None)
Quarter: 2011Q1

REPORT INFORMATION
  Report Type: 
  Country: None (occurrence: None)
  Receive Date: 20110124
  Receipt Date: 20110112
  Transmission Date: 20110831
  Serious: Yes (Death)
  Sender: FDA-Public Use
  Company Number: US-CELGENEUS-163-21880-11011298

PATIENT
  Sex: Female

DRUGS (7)
  1. REVLIMID [Suspect]
     Indication: MULTIPLE MYELOMA
     Route: 048
     Dates: start: 20090701, end: 20090101
  2. REVLIMID [Suspect]
     Dosage: 15MG-10MG
     Route: 048
     Dates: start: 20091001, end: 20100101
  3. REVLIMID [Suspect]
     Route: 048
     Dates: start: 20100901
  4. DEXAMETHASONE [Concomitant]
     Route: 065
  5. HYDROCHLOROTHIAZIDE [Concomitant]
     Route: 065
  6. AMBIEN [Concomitant]
     Route: 065
  7. TRAMADOL [Concomitant]
     Route: 065

REACTIONS (1)
  - DEATH [None]
